FAERS Safety Report 8517322-5 (Version None)
Quarter: 2012Q3

REPORT INFORMATION
  Report Type: 
  Country: None (occurrence: None)
  Receive Date: 20120718
  Receipt Date: 20120716
  Transmission Date: 20120928
  Serious: Yes (Other)
  Sender: FDA-Public Use
  Company Number: US-PFIZER INC-2012135591

PATIENT
  Sex: Female
  Weight: 75 kg

DRUGS (8)
  1. GENOTROPIN [Suspect]
     Dosage: 0.2 MG, 1X/DAY
     Dates: start: 20111201
  2. GENOTROPIN [Suspect]
     Dosage: 0.2 MG, (ONE TO TWO TIMES A WEEK)
     Dates: start: 20120201
  3. GENOTROPIN [Suspect]
     Indication: BLOOD GROWTH HORMONE ABNORMAL
     Dosage: 0.4 MG, 1X/DAY
     Dates: start: 20111101, end: 20111201
  4. BENICAR [Concomitant]
     Indication: HYPERTENSION
     Dosage: UNK
  5. PROGESTERONE [Concomitant]
     Dosage: UNK
  6. LIOTHYRONINE [Concomitant]
     Indication: HYPOTHYROIDISM
     Dosage: UNK
  7. ESTROGENS [Concomitant]
     Dosage: UNK
  8. LEVOTHYROXINE [Concomitant]
     Indication: HYPOTHYROIDISM
     Dosage: UNK

REACTIONS (5)
  - THROAT TIGHTNESS [None]
  - JAW DISORDER [None]
  - DYSPHAGIA [None]
  - HYPERSENSITIVITY [None]
  - CARDIAC DISORDER [None]
